FAERS Safety Report 24823236 (Version 4)
Quarter: 2025Q3

REPORT INFORMATION
  Report Type: Spontaneous
  Country: US (occurrence: US)
  Receive Date: 20250109
  Receipt Date: 20250722
  Transmission Date: 20251021
  Serious: No
  Sender: BIOVITRUM
  Company Number: US-BIOVITRUM-2025-US-000258

PATIENT
  Age: 65 Year
  Sex: Female

DRUGS (1)
  1. VONJO [Suspect]
     Active Substance: PACRITINIB
     Indication: Thrombocytopenia
     Route: 048
     Dates: start: 20240726

REACTIONS (3)
  - Blood pressure increased [Unknown]
  - Product use issue [Unknown]
  - Cardiomegaly [Unknown]
